FAERS Safety Report 5779746-9 (Version None)
Quarter: 2008Q2

REPORT INFORMATION
  Report Type: 
  Country: None (occurrence: None)
  Receive Date: 20080617
  Receipt Date: 20080602
  Transmission Date: 20081010
  Serious: Yes (Hospitalization)
  Sender: FDA-Public Use
  Company Number: S08-GER-02071-01

PATIENT
  Age: 76 Year
  Sex: Male
  Weight: 70 kg

DRUGS (2)
  1. ESCITALOPRAM [Suspect]
     Indication: DEPRESSION
     Dosage: 10 MG QD PO
     Route: 048
     Dates: start: 20080509
  2. SUBOXONE [Suspect]
     Indication: DRUG DEPENDENCE
     Dosage: 10 MG QD
     Dates: start: 20080518

REACTIONS (2)
  - ADJUSTMENT DISORDER [None]
  - DRUG INTERACTION [None]
